FAERS Safety Report 8922556 (Version 1)
Quarter: 2012Q4

REPORT INFORMATION
  Report Type: Spontaneous
  Country: BR (occurrence: None)
  Receive Date: 20121109
  Receipt Date: 20121109
  Transmission Date: 20130627
  Serious: Yes (Hospitalization, Other)
  Sender: FDA-Public Use
  Company Number: 2012S100385

PATIENT
  Age: 75 Year
  Sex: Male
  Weight: 84.5 kg

DRUGS (12)
  1. CUBICIN [Suspect]
     Route: 042
     Dates: start: 20120216, end: 20120304
  2. AMITRIPTYLINE [Concomitant]
  3. CLEXANE [Concomitant]
  4. DIMORF [Concomitant]
  5. ESOMEPRAZOLE [Concomitant]
  6. GABAPENTIN [Concomitant]
  7. HIDROXIZIN [Concomitant]
  8. LEVOFLOXACIN [Concomitant]
  9. METICORTEN [Concomitant]
  10. ANTIBIOTICS [Concomitant]
  11. ACETYLSALICYLIC ACID [Concomitant]
  12. MEROPENEM [Concomitant]

REACTIONS (1)
  - Eosinophilic pneumonia [None]
